FAERS Safety Report 8215097-0 (Version None)
Quarter: 2012Q1

REPORT INFORMATION
  Report Type: 
  Country: None (occurrence: None)
  Receive Date: 20120316
  Receipt Date: 20120309
  Transmission Date: 20120608
  Serious: Yes (Hospitalization)
  Sender: FDA-Public Use
  Company Number: PHHY2012TR020920

PATIENT
  Age: 46 Year
  Sex: Male

DRUGS (1)
  1. WARFARIN SODIUM [Suspect]
     Indication: DEEP VEIN THROMBOSIS
     Dosage: UNK UKN, UNK

REACTIONS (7)
  - MUSCULAR WEAKNESS [None]
  - BACK PAIN [None]
  - REFLEXES ABNORMAL [None]
  - SPINAL CORD COMPRESSION [None]
  - PARAPARESIS [None]
  - HYPOAESTHESIA [None]
  - EXTRADURAL HAEMATOMA [None]
